FAERS Safety Report 7377436-2 (Version None)
Quarter: 2011Q1

REPORT INFORMATION
  Report Type: 
  Country: None (occurrence: None)
  Receive Date: 20110328
  Receipt Date: 20110314
  Transmission Date: 20110831
  Serious: Yes (Other)
  Sender: FDA-Public Use
  Company Number: IE-JNJFOC-20110306845

PATIENT
  Age: 53 Year
  Sex: Female

DRUGS (3)
  1. REMICADE [Suspect]
     Indication: PSORIATIC ARTHROPATHY
     Dosage: 4TH INFUSION
     Route: 042
  2. CLARITIN [Concomitant]
     Indication: PREMEDICATION
     Route: 065
  3. HYDROCORTISONE [Concomitant]
     Indication: PREMEDICATION
     Route: 065

REACTIONS (3)
  - DYSPNOEA [None]
  - SYNCOPE [None]
  - INFUSION RELATED REACTION [None]
